FAERS Safety Report 19057157 (Version 1)
Quarter: 2021Q1

REPORT INFORMATION
  Report Type: Spontaneous
  Country: CA (occurrence: CA)
  Receive Date: 20210325
  Receipt Date: 20210325
  Transmission Date: 20210420
  Serious: Yes (Death)
  Sender: FDA-Public Use
  Company Number: CA-PFIZER INC-2021299353

PATIENT
  Age: 76 Year
  Sex: Female

DRUGS (1)
  1. DAURISMO [Suspect]
     Active Substance: GLASDEGIB
     Dosage: 100 MG, DAILY (OD)
     Route: 048
     Dates: start: 20210126

REACTIONS (1)
  - Death [Fatal]

NARRATIVE: CASE EVENT DATE: 20210314
